FAERS Safety Report 4531898-4 (Version None)
Quarter: 2004Q4

REPORT INFORMATION
  Report Type: 
  Country: None (occurrence: None)
  Receive Date: 20041216
  Receipt Date: 20041207
  Transmission Date: 20050328
  Serious: Yes (Hospitalization, Disabling, Other)
  Sender: FDA-Public Use
  Company Number: 2004034560

PATIENT
  Age: 33 Year
  Sex: Female
  Weight: 68.0396 kg

DRUGS (3)
  1. RELPAX [Suspect]
     Indication: MIGRAINE WITHOUT AURA
     Dosage: 40 MG (40 MG , ONCE0, ORAL
     Route: 048
     Dates: start: 20040505, end: 20040505
  2. VITAMINS (VITAMINS) [Concomitant]
  3. IBUPROFEN [Concomitant]

REACTIONS (12)
  - ASTHENIA [None]
  - BLOOD PHOSPHORUS DECREASED [None]
  - COMA [None]
  - FALL [None]
  - LOSS OF CONSCIOUSNESS [None]
  - PARAESTHESIA [None]
  - POTASSIUM CHLORIDE SENSITIVITY TEST ABNORMAL [None]
  - PROTHROMBIN TIME PROLONGED [None]
  - SENSORY LOSS [None]
  - SPEECH DISORDER [None]
  - SYNCOPE [None]
  - VISION BLURRED [None]
